FAERS Safety Report 10347026 (Version 2)
Quarter: 2015Q4

REPORT INFORMATION
  Report Type: Report from Study
  Country: MX (occurrence: MX)
  Receive Date: 20140729
  Receipt Date: 20151117
  Transmission Date: 20160304
  Serious: Yes (Disabling, Other)
  Sender: FDA-Public Use
  Company Number: PHHY2014MX092319

PATIENT
  Sex: Female

DRUGS (2)
  1. CO-DIOVAN [Suspect]
     Active Substance: HYDROCHLOROTHIAZIDE\VALSARTAN
     Dosage: 1 DF, 320 MG VALSARTAN, 12.5 MG HYDROCHLOROTHIAZIDE
     Route: 065
  2. CO-DIOVAN [Suspect]
     Active Substance: HYDROCHLOROTHIAZIDE\VALSARTAN
     Indication: BLOOD PRESSURE INCREASED
     Dosage: 1 DF, QD (160 MG VALSARTAN,  12.5 MG HYDROCHLOROTHIAZIDE)
     Route: 065
     Dates: start: 2000

REACTIONS (6)
  - Hip fracture [Not Recovered/Not Resolved]
  - Malaise [Not Recovered/Not Resolved]
  - Upper limb fracture [Not Recovered/Not Resolved]
  - Drug ineffective [Recovering/Resolving]
  - Gait disturbance [Not Recovered/Not Resolved]
  - Memory impairment [Unknown]
